FAERS Safety Report 7337142-7 (Version None)
Quarter: 2011Q1

REPORT INFORMATION
  Report Type: 
  Country: None (occurrence: None)
  Receive Date: 20110308
  Receipt Date: 20110301
  Transmission Date: 20110831
  Serious: Yes (Other)
  Sender: FDA-Public Use
  Company Number: FR-AMGEN-FRASP2011002276

PATIENT
  Age: 54 Year
  Sex: Female

DRUGS (1)
  1. ENBREL [Suspect]
     Indication: ANKYLOSING SPONDYLITIS
     Dosage: 50 MG, WEEKLY
     Dates: start: 20110104, end: 20110209

REACTIONS (10)
  - RESPIRATORY TRACT IRRITATION [None]
  - PALLOR [None]
  - LEUKOPENIA [None]
  - NASOPHARYNGITIS [None]
  - INJECTION SITE ERYTHEMA [None]
  - FATIGUE [None]
  - NEUTROPHIL COUNT DECREASED [None]
  - COUGH [None]
  - PRURITUS GENERALISED [None]
  - FORMICATION [None]
